FAERS Safety Report 14783836 (Version 1)
Quarter: 2018Q2

REPORT INFORMATION
  Report Type: Spontaneous
  Country: TR (occurrence: TR)
  Receive Date: 20180420
  Receipt Date: 20180420
  Transmission Date: 20180711
  Serious: Yes (Hospitalization)
  Sender: FDA-Public Use
  Company Number: PHHY2018TR065107

PATIENT
  Age: 34 Year
  Sex: Male

DRUGS (2)
  1. LEVOFLOXACIN. [Suspect]
     Active Substance: LEVOFLOXACIN
     Indication: UPPER RESPIRATORY TRACT INFECTION
     Dosage: UNK
     Route: 065
  2. AMOXICILLIN AND CLAVULANATE [Suspect]
     Active Substance: AMOXICILLIN\CLAVULANIC ACID
     Indication: UPPER RESPIRATORY TRACT INFECTION
     Dosage: UNK
     Route: 065

REACTIONS (7)
  - Drug ineffective [Recovered/Resolved]
  - General physical health deterioration [Recovered/Resolved]
  - Confusional state [Unknown]
  - Feeling abnormal [Recovered/Resolved]
  - Central nervous system infection [Unknown]
  - Agitation [Recovered/Resolved]
  - Altered state of consciousness [Unknown]
